FAERS Safety Report 11634269 (Version 1)
Quarter: 2015Q4

REPORT INFORMATION
  Report Type: Spontaneous
  Country: US (occurrence: US)
  Receive Date: 20151015
  Receipt Date: 20151015
  Transmission Date: 20160304
  Serious: Yes (Life-Threatening, Other)
  Sender: FDA-Public Use
  Company Number: US-APOTEX-2015AP006739

PATIENT
  Age: 2 Month
  Sex: Male
  Weight: 3 kg

DRUGS (2)
  1. MORPHINE [Suspect]
     Active Substance: MORPHINE
     Indication: VASCULAR OPERATION
     Dosage: AT 2348, 0237, 0543
     Route: 042
  2. MIDAZOLAM HYDROCHLORIDE INJECTION [Suspect]
     Active Substance: MIDAZOLAM HYDROCHLORIDE
     Indication: VASCULAR OPERATION
     Dosage: AT 2348, 0237, 0543
     Route: 042

REACTIONS (2)
  - Respiratory depression [Recovered/Resolved]
  - Potentiating drug interaction [Recovered/Resolved]
